FAERS Safety Report 4965053-0 (Version None)
Quarter: 2006Q2

REPORT INFORMATION
  Report Type: 
  Country: None (occurrence: None)
  Receive Date: 20060403
  Receipt Date: 20060322
  Transmission Date: 20061013
  Serious: Yes (Other)
  Sender: FDA-Public Use
  Company Number: 2005138672

PATIENT
  Age: 79 Year
  Sex: Female

DRUGS (3)
  1. AZULFIDINE EN-TABS [Suspect]
     Indication: ILL-DEFINED DISORDER
     Dosage: ORAL
     Route: 048
     Dates: start: 20020101
  2. RIDAURA [Suspect]
     Indication: ILL-DEFINED DISORDER
     Dosage: ORAL
     Route: 048
     Dates: start: 20020101
  3. PREDNISOLONE [Concomitant]

REACTIONS (2)
  - PNEUMONIA [None]
  - SPINAL COMPRESSION FRACTURE [None]
